FAERS Safety Report 8203204-5 (Version None)
Quarter: 2012Q1

REPORT INFORMATION
  Report Type: 
  Country: None (occurrence: None)
  Receive Date: 20120312
  Receipt Date: 20120308
  Transmission Date: 20120608
  Serious: Yes (Death, Hospitalization)
  Sender: FDA-Public Use
  Company Number: NL-ROCHE-1040120

PATIENT
  Sex: Female

DRUGS (8)
  1. ACETAMINOPHEN [Concomitant]
     Dosage: LAST DOSE ADMINISTERED PRIOR TO SAE WAS ON 13/FEB/2012
     Route: 048
     Dates: start: 20120116
  2. LEVOTHYROXINE SODIUM [Concomitant]
     Dosage: LAST DOSE ADMINISTERED PRIOR TO SAE WAS ON 13/FEB/2012
     Route: 048
     Dates: start: 20100630
  3. ACETAMINOPHEN [Concomitant]
     Route: 048
     Dates: start: 20120220, end: 20120224
  4. DEXAMETHASONE SODIUM PHOSPHATE [Concomitant]
     Dosage: LAST DOSE ADMINISTERED PRIOR TO SAE WAS ON 13/FEB/2012
     Route: 048
     Dates: start: 20120116, end: 20120224
  5. OMEPRAZOLE [Concomitant]
     Dosage: LAST DOSE ADMINISTERED PRIOR TO SAE WAS ON 13/FEB/2012
     Route: 048
     Dates: start: 20120116
  6. ESOMEPRAZOLE SODIUM [Concomitant]
     Route: 048
     Dates: start: 20120116
  7. AVASTIN [Suspect]
     Indication: BRAIN NEOPLASM MALIGNANT
     Dosage: LAST DOSE ADMINISTERED PRIOR TO SAE WAS ON 13/FEB/2012
     Route: 042
     Dates: start: 20111025
  8. KEPPRA [Concomitant]
     Dosage: LAST DOSE ADMINISTERED PRIOR TO SAE WAS ON 13/FEB/2012
     Route: 048
     Dates: start: 20100707

REACTIONS (3)
  - BRAIN STEM SYNDROME [None]
  - INFECTION [None]
  - PNEUMONIA ASPIRATION [None]
